FAERS Safety Report 5046300-6 (Version None)
Quarter: 2006Q3

REPORT INFORMATION
  Report Type: 
  Country: None (occurrence: None)
  Receive Date: 20060710
  Receipt Date: 20060616
  Transmission Date: 20061208
  Serious: Yes (Disabling)
  Sender: FDA-Public Use
  Company Number: 2006SE03433

PATIENT
  Age: 684 Month
  Sex: Male
  Weight: 80 kg

DRUGS (2)
  1. BLOPRESS PLUS [Suspect]
     Indication: HYPERTENSION
     Dosage: CANDESARTAN CILEXETIL 8 MG HYDROCHLOROTHIAZIDE 12.5 MG
     Route: 048
     Dates: start: 20010101, end: 20050101
  2. BLOPRESS PLUS [Suspect]
     Dosage: CANDESARTAN CILEXETIL 16 MG HYDROCHLOROTHIAZIDE 12.5 MG
     Route: 048
     Dates: start: 20050101

REACTIONS (1)
  - DYSGEUSIA [None]
